FAERS Safety Report 17726696 (Version 1)
Quarter: 2020Q2

REPORT INFORMATION
  Report Type: Spontaneous
  Country: US (occurrence: US)
  Receive Date: 20200430
  Receipt Date: 20200430
  Transmission Date: 20200714
  Serious: No
  Sender: FDA-Public Use
  Company Number: US-BIOGEN-2013BI054225

PATIENT
  Age: 52 Year
  Sex: Female

DRUGS (1)
  1. TYSABRI [Suspect]
     Active Substance: NATALIZUMAB
     Indication: MULTIPLE SCLEROSIS
     Route: 042
     Dates: start: 20120815

REACTIONS (3)
  - Cholelithiasis [Recovered/Resolved with Sequelae]
  - Umbilical hernia [Recovered/Resolved with Sequelae]
  - Biliary colic [Unknown]

NARRATIVE: CASE EVENT DATE: 201305
